FAERS Safety Report 13020099 (Version 1)
Quarter: 2016Q4

REPORT INFORMATION
  Report Type: Spontaneous
  Country: US (occurrence: US)
  Receive Date: 20161212
  Receipt Date: 20161212
  Transmission Date: 20170207
  Serious: No
  Sender: FDA-Public Use
  Company Number: US-BAYER-2016-229619

PATIENT
  Age: 35 Year
  Sex: Female

DRUGS (1)
  1. FINACEA [Suspect]
     Active Substance: AZELAIC ACID
     Indication: ACNE
     Dosage: 2 DF, QD
     Route: 061
     Dates: start: 2012

REACTIONS (1)
  - Maternal exposure during pregnancy [None]
